FAERS Safety Report 16430463 (Version 2)
Quarter: 2019Q3

REPORT INFORMATION
  Report Type: Spontaneous
  Country: US (occurrence: US)
  Receive Date: 20190614
  Receipt Date: 20190710
  Transmission Date: 20191004
  Serious: Yes (Other)
  Sender: FDA-Public Use
  Company Number: US-AUROBINDO-AUR-APL-2019-032469

PATIENT

DRUGS (1)
  1. TOPIRAMATE. [Suspect]
     Active Substance: TOPIRAMATE
     Indication: EPILEPSY
     Dosage: 125 MILLIGRAM, ONCE A DAY
     Route: 065

REACTIONS (4)
  - Renal tubular acidosis [Unknown]
  - Potassium wasting nephropathy [Unknown]
  - Metabolic acidosis [Unknown]
  - Familial periodic paralysis [Unknown]
